FAERS Safety Report 9705235 (Version 1)
Quarter: 2013Q4

REPORT INFORMATION
  Report Type: Spontaneous
  Country: ES (occurrence: ES)
  Receive Date: 20131122
  Receipt Date: 20131122
  Transmission Date: 20140711
  Serious: Yes (Hospitalization)
  Sender: FDA-Public Use
  Company Number: ES-BAYER-2013-139305

PATIENT
  Age: 80 Year
  Sex: Male

DRUGS (8)
  1. ADIRO 100 [Suspect]
     Indication: CARDIOVASCULAR EVENT PROPHYLAXIS
     Dosage: 100 MG, QD
     Route: 048
     Dates: start: 2006, end: 20130305
  2. TARDYFERON [Concomitant]
     Indication: IRON DEFICIENCY ANAEMIA
     Dosage: 80 MG, QD
     Route: 048
     Dates: start: 201301
  3. SEGURIL [Concomitant]
     Indication: HYPERTENSION
     Dosage: 40 MG, QD (1-0-0)
     Route: 048
     Dates: start: 2006
  4. DUODART [Concomitant]
     Indication: BENIGN PROSTATIC HYPERPLASIA
     Dosage: 1 DF, QD
     Route: 048
     Dates: start: 2008
  5. DILTIAZEM [Concomitant]
     Indication: ATRIAL FIBRILLATION
     Dosage: 120 MG, QD (1-0-0)
     Route: 048
     Dates: start: 2006
  6. OMEPRAZOL [Concomitant]
     Indication: PROPHYLAXIS AGAINST GASTROINTESTINAL ULCER
     Dosage: 20 MG, QD
     Route: 048
     Dates: start: 2006
  7. ATORVASTATIN [Concomitant]
     Indication: DYSLIPIDAEMIA
     Dosage: 40 MG, QD (0-0-1)
     Route: 048
     Dates: start: 2006
  8. PLUSVENT [Concomitant]
     Indication: CHRONIC OBSTRUCTIVE PULMONARY DISEASE
     Route: 055
     Dates: start: 2003

REACTIONS (1)
  - Iron deficiency anaemia [Recovered/Resolved]
